FAERS Safety Report 20604748 (Version 1)
Quarter: 2022Q1

REPORT INFORMATION
  Report Type: Report from Study
  Country: CN (occurrence: None)
  Receive Date: 20220317
  Receipt Date: 20220317
  Transmission Date: 20220424
  Serious: Yes (Hospitalization)
  Sender: FDA-Public Use
  Company Number: CN-ROCHE-2245041

PATIENT
  Age: 55 Year
  Sex: Female
  Weight: 48.5 kg

DRUGS (18)
  1. PERTUZUMAB [Suspect]
     Active Substance: PERTUZUMAB
     Indication: Breast cancer metastatic
     Dosage: LOADING DOSE
     Route: 042
     Dates: start: 20161014
  2. PERTUZUMAB [Suspect]
     Active Substance: PERTUZUMAB
     Dosage: DATE OF MOST RECENT DOSE OF BLINDED PERTUZUMAB PRIOR TO SAE ONSET 21 DEC 2018
     Route: 042
  3. TRASTUZUMAB [Suspect]
     Active Substance: TRASTUZUMAB
     Indication: Breast cancer metastatic
     Dosage: LOADING DOSE
     Route: 042
     Dates: start: 20161014
  4. TRASTUZUMAB [Suspect]
     Active Substance: TRASTUZUMAB
     Dosage: DATE OF MOST RECENT DOSE OF TRASTUZUMAB PRIOR TO SAE ONSET  21 DEC 2018
     Route: 042
  5. DOCETAXEL [Suspect]
     Active Substance: DOCETAXEL
     Indication: Breast cancer metastatic
     Dosage: 75-MG/M^2?DATE OF MOST RECENT DOSE 07/MAR/2017 AT 116 MG
     Route: 042
     Dates: start: 20161014
  6. CALCIUM CARBONATE [Concomitant]
     Active Substance: CALCIUM CARBONATE
     Indication: Infusion related reaction
     Dates: start: 20171030
  7. VITAMIN D3 [Concomitant]
     Active Substance: CHOLECALCIFEROL
     Indication: Infusion related reaction
     Dates: start: 20171030
  8. POTASSIUM CHLORIDE [Concomitant]
     Active Substance: POTASSIUM CHLORIDE
     Indication: Hypokalaemia
     Dates: start: 20180303
  9. OMEPRAZOLE [Concomitant]
     Active Substance: OMEPRAZOLE
     Indication: Infusion related reaction
     Dates: start: 20181221, end: 20181221
  10. OMEPRAZOLE [Concomitant]
     Active Substance: OMEPRAZOLE
     Dates: start: 20190111, end: 20190111
  11. DIISOPROPYLAMMONIUM DICHLOROACETATE [Concomitant]
     Active Substance: DIISOPROPYLAMMONIUM DICHLOROACETATE
     Indication: Infusion related reaction
     Dates: start: 20181221, end: 20181221
  12. DIISOPROPYLAMMONIUM DICHLOROACETATE [Concomitant]
     Active Substance: DIISOPROPYLAMMONIUM DICHLOROACETATE
     Dates: start: 20190111, end: 20190111
  13. LEVOCARNITINE [Concomitant]
     Active Substance: LEVOCARNITINE
     Indication: Infusion related reaction
     Dates: start: 20181221, end: 20181221
  14. LEVOCARNITINE [Concomitant]
     Active Substance: LEVOCARNITINE
     Dates: start: 20190111, end: 20190111
  15. DIPHENHYDRAMINE [Concomitant]
     Active Substance: DIPHENHYDRAMINE
     Indication: Infusion related reaction
     Dates: start: 20181221, end: 20181221
  16. DIPHENHYDRAMINE [Concomitant]
     Active Substance: DIPHENHYDRAMINE
     Dates: start: 20190111, end: 20190111
  17. ZOLEDRONIC ACID [Concomitant]
     Active Substance: ZOLEDRONIC ACID
     Dosage: INHIBIT BONE DESTRUCTION
     Dates: start: 20181221, end: 20181221
  18. ZOLEDRONIC ACID [Concomitant]
     Active Substance: ZOLEDRONIC ACID
     Dates: start: 20190111, end: 20190111

REACTIONS (1)
  - Pneumonia [Recovered/Resolved]

NARRATIVE: CASE EVENT DATE: 20190110
